FAERS Safety Report 26067282 (Version 2)
Quarter: 2025Q4

REPORT INFORMATION
  Report Type: Spontaneous
  Country: US (occurrence: US)
  Receive Date: 20251120
  Receipt Date: 20251231
  Transmission Date: 20260118
  Serious: No
  Sender: SANDOZ
  Company Number: US-SANDOZ-SDZ2025US085756

PATIENT
  Age: 56 Year
  Sex: Female

DRUGS (1)
  1. ESTRADIOL [Suspect]
     Active Substance: ESTRADIOL
     Indication: Product used for unknown indication
     Dosage: ESTRADIOL 0.1MG/24H 8TTS V1 USSTRENGTH OF MEDICATION: 0.1MG/24H 8TTS V1 US

REACTIONS (3)
  - Circumstance or information capable of leading to device use error [Unknown]
  - Product quality issue [Unknown]
  - Device adhesion issue [Unknown]

NARRATIVE: CASE EVENT DATE: 20250101
